FAERS Safety Report 18868977 (Version 4)
Quarter: 2021Q2

REPORT INFORMATION
  Report Type: Report from Study
  Country: US (occurrence: US)
  Receive Date: 20210209
  Receipt Date: 20210506
  Transmission Date: 20210717
  Serious: No
  Sender: FDA-Public Use
  Company Number: US-TAKEDA-2021TUS005899

PATIENT
  Sex: Female
  Weight: 53 kg

DRUGS (11)
  1. SINGULAIR [Concomitant]
     Active Substance: MONTELUKAST SODIUM
  2. PROGESTERONE. [Concomitant]
     Active Substance: PROGESTERONE
  3. LEVOTHYROXINE. [Concomitant]
     Active Substance: LEVOTHYROXINE
  4. NORVASC [Concomitant]
     Active Substance: AMLODIPINE BESYLATE
  5. MOBIC [Concomitant]
     Active Substance: MELOXICAM
  6. CUVITRU [Suspect]
     Active Substance: HUMAN IMMUNOGLOBULIN G
     Indication: IMMUNODEFICIENCY COMMON VARIABLE
     Dosage: 6 GRAM, 1/WEEK
     Route: 058
  7. CUVITRU [Suspect]
     Active Substance: HUMAN IMMUNOGLOBULIN G
     Dosage: 5 GRAM, 1/WEEK
     Route: 058
  8. PROAIR HFA [Concomitant]
     Active Substance: ALBUTEROL SULFATE
     Route: 065
  9. NEXIUM I.V. [Concomitant]
     Active Substance: ESOMEPRAZOLE SODIUM
     Route: 065
  10. ESTRADIOL. [Concomitant]
     Active Substance: ESTRADIOL
  11. XANAX [Concomitant]
     Active Substance: ALPRAZOLAM

REACTIONS (5)
  - Fatigue [Unknown]
  - Influenza like illness [Unknown]
  - Malaise [Unknown]
  - Infusion related reaction [Unknown]
  - Feeling abnormal [Unknown]
